FAERS Safety Report 20250473 (Version 1)
Quarter: 2021Q4

REPORT INFORMATION
  Report Type: Spontaneous
  Country: US (occurrence: US)
  Receive Date: 20211229
  Receipt Date: 20211229
  Transmission Date: 20220303
  Serious: Yes (Other)
  Sender: FDA-Public Use
  Company Number: US-PURDUE-USA-2020-0218601

PATIENT
  Sex: Female

DRUGS (36)
  1. OXYCONTIN [Suspect]
     Active Substance: OXYCODONE HYDROCHLORIDE
     Indication: Pain
     Dosage: UNKNOWN
     Route: 048
  2. OXYCONTIN [Suspect]
     Active Substance: OXYCODONE HYDROCHLORIDE
     Indication: Bipolar disorder
  3. OXYCONTIN [Suspect]
     Active Substance: OXYCODONE HYDROCHLORIDE
     Indication: Post-traumatic stress disorder
  4. OXYCONTIN [Suspect]
     Active Substance: OXYCODONE HYDROCHLORIDE
     Indication: Attention deficit hyperactivity disorder
  5. OXYCONTIN [Suspect]
     Active Substance: OXYCODONE HYDROCHLORIDE
     Indication: Obsessive-compulsive disorder
  6. DILAUDID [Suspect]
     Active Substance: HYDROMORPHONE HYDROCHLORIDE
     Indication: Pain
     Dosage: UNKNOWN
     Route: 048
  7. DILAUDID [Suspect]
     Active Substance: HYDROMORPHONE HYDROCHLORIDE
     Indication: Bipolar disorder
  8. DILAUDID [Suspect]
     Active Substance: HYDROMORPHONE HYDROCHLORIDE
     Indication: Post-traumatic stress disorder
  9. DILAUDID [Suspect]
     Active Substance: HYDROMORPHONE HYDROCHLORIDE
     Indication: Attention deficit hyperactivity disorder
  10. DILAUDID [Suspect]
     Active Substance: HYDROMORPHONE HYDROCHLORIDE
     Indication: Obsessive-compulsive disorder
  11. MS CONTIN [Suspect]
     Active Substance: MORPHINE SULFATE
     Indication: Pain
     Dosage: UNKNOWN
     Route: 048
  12. MS CONTIN [Suspect]
     Active Substance: MORPHINE SULFATE
     Indication: Bipolar disorder
  13. MS CONTIN [Suspect]
     Active Substance: MORPHINE SULFATE
     Indication: Post-traumatic stress disorder
  14. MS CONTIN [Suspect]
     Active Substance: MORPHINE SULFATE
     Indication: Attention deficit hyperactivity disorder
  15. MS CONTIN [Suspect]
     Active Substance: MORPHINE SULFATE
     Indication: Obsessive-compulsive disorder
  16. OXYCODONE HYDROCHLORIDE [Suspect]
     Active Substance: OXYCODONE HYDROCHLORIDE
     Indication: Pain
     Dosage: 20 MG, Q12H PRN
     Route: 048
  17. OXYCODONE HYDROCHLORIDE [Suspect]
     Active Substance: OXYCODONE HYDROCHLORIDE
     Indication: Bipolar disorder
  18. OXYCODONE HYDROCHLORIDE [Suspect]
     Active Substance: OXYCODONE HYDROCHLORIDE
     Indication: Post-traumatic stress disorder
  19. OXYCODONE HYDROCHLORIDE [Suspect]
     Active Substance: OXYCODONE HYDROCHLORIDE
     Indication: Attention deficit hyperactivity disorder
  20. OXYCODONE HYDROCHLORIDE [Suspect]
     Active Substance: OXYCODONE HYDROCHLORIDE
     Indication: Obsessive-compulsive disorder
  21. ACETAMINOPHEN\OXYCODONE HYDROCHLORIDE [Suspect]
     Active Substance: ACETAMINOPHEN\OXYCODONE HYDROCHLORIDE
     Indication: Pain
     Dosage: UNKNOWN
     Route: 048
  22. ACETAMINOPHEN\OXYCODONE HYDROCHLORIDE [Suspect]
     Active Substance: ACETAMINOPHEN\OXYCODONE HYDROCHLORIDE
     Indication: Bipolar disorder
  23. ACETAMINOPHEN\OXYCODONE HYDROCHLORIDE [Suspect]
     Active Substance: ACETAMINOPHEN\OXYCODONE HYDROCHLORIDE
     Indication: Post-traumatic stress disorder
  24. ACETAMINOPHEN\OXYCODONE HYDROCHLORIDE [Suspect]
     Active Substance: ACETAMINOPHEN\OXYCODONE HYDROCHLORIDE
     Indication: Attention deficit hyperactivity disorder
  25. ACETAMINOPHEN\OXYCODONE HYDROCHLORIDE [Suspect]
     Active Substance: ACETAMINOPHEN\OXYCODONE HYDROCHLORIDE
     Indication: Obsessive-compulsive disorder
  26. HYDROCODONE BITARTRATE AND ACETAMINOPHEN [Suspect]
     Active Substance: ACETAMINOPHEN\HYDROCODONE BITARTRATE
     Indication: Pain
     Dosage: 1 DF (5/500MG), Q8H PRN
     Route: 048
  27. HYDROCODONE BITARTRATE AND ACETAMINOPHEN [Suspect]
     Active Substance: ACETAMINOPHEN\HYDROCODONE BITARTRATE
     Indication: Bipolar disorder
  28. HYDROCODONE BITARTRATE AND ACETAMINOPHEN [Suspect]
     Active Substance: ACETAMINOPHEN\HYDROCODONE BITARTRATE
     Indication: Post-traumatic stress disorder
  29. HYDROCODONE BITARTRATE AND ACETAMINOPHEN [Suspect]
     Active Substance: ACETAMINOPHEN\HYDROCODONE BITARTRATE
     Indication: Attention deficit hyperactivity disorder
  30. HYDROCODONE BITARTRATE AND ACETAMINOPHEN [Suspect]
     Active Substance: ACETAMINOPHEN\HYDROCODONE BITARTRATE
     Indication: Obsessive-compulsive disorder
  31. MORPHINE SULFATE [Suspect]
     Active Substance: MORPHINE SULFATE
     Indication: Pain
     Dosage: UNKNOWN
     Route: 041
  32. MORPHINE SULFATE [Suspect]
     Active Substance: MORPHINE SULFATE
     Indication: Bipolar disorder
  33. MORPHINE SULFATE [Suspect]
     Active Substance: MORPHINE SULFATE
     Indication: Post-traumatic stress disorder
  34. MORPHINE SULFATE [Suspect]
     Active Substance: MORPHINE SULFATE
     Indication: Attention deficit hyperactivity disorder
  35. MORPHINE SULFATE [Suspect]
     Active Substance: MORPHINE SULFATE
     Indication: Obsessive-compulsive disorder
  36. TRAMADOL [Suspect]
     Active Substance: TRAMADOL
     Dosage: 50 MG, Q6H PRN
     Route: 048

REACTIONS (11)
  - Overdose [Unknown]
  - Drug dependence [Recovered/Resolved]
  - Drug withdrawal syndrome [Unknown]
  - Illness [Unknown]
  - Vomiting [Unknown]
  - Weight increased [Unknown]
  - Somnolence [Unknown]
  - Chills [Unknown]
  - Mood swings [Unknown]
  - Diarrhoea [Unknown]
  - Abdominal pain upper [Unknown]
